FAERS Safety Report 17110440 (Version 2)
Quarter: 2019Q4

REPORT INFORMATION
  Report Type: Spontaneous
  Country: DE (occurrence: DE)
  Receive Date: 20191204
  Receipt Date: 20191209
  Transmission Date: 20200122
  Serious: Yes (Hospitalization)
  Sender: FDA-Public Use
  Company Number: DE-MYLANLABS-2019M1117167

PATIENT
  Age: 48 Year
  Sex: Male
  Weight: 119 kg

DRUGS (10)
  1. LINEZOLID. [Suspect]
     Active Substance: LINEZOLID
     Indication: PRODUCT USED FOR UNKNOWN INDICATION
     Dosage: 600 MG, 1-0-1, TABLETTEN
     Route: 048
  2. FUROSEMIDE. [Concomitant]
     Active Substance: FUROSEMIDE
     Dosage: 40 MG, 2-1-0, TABLETTEN
     Route: 048
  3. EPLERENONE. [Concomitant]
     Active Substance: EPLERENONE
     Dosage: 25 MG, 1-0-0, TABLETTEN
     Route: 048
  4. CANDESARTAN. [Concomitant]
     Active Substance: CANDESARTAN
     Dosage: 8 MG, 1-0-0, TABLETTEN
     Route: 048
  5. ACETYLSALICYLSAEURE [Concomitant]
     Active Substance: ASPIRIN
     Dosage: 100 MG, 1-0-0, TABLETTEN
     Route: 048
  6. AMIODARON                          /00133101/ [Concomitant]
     Active Substance: AMIODARONE
     Dosage: LETZTE EINNAHME 06/2017, TABLETTEN
     Route: 048
  7. PHENPROCOUMON [Concomitant]
     Active Substance: PHENPROCOUMON
     Dosage: 3 MG, NACH INR, TABLETTEN
     Route: 048
  8. PANTOPRAZOL                        /01263201/ [Concomitant]
     Active Substance: PANTOPRAZOLE
     Dosage: 40 MG, 1-0-1, TABLETTEN
     Route: 048
  9. METOPROLOL. [Concomitant]
     Active Substance: METOPROLOL
     Dosage: 47.5 MG, 1-1-1, TABLETTEN
     Route: 048
  10. CARBIMAZOLE [Concomitant]
     Active Substance: CARBIMAZOLE
     Dosage: 10 MG, 1-1-1, TABLETTEN
     Route: 048

REACTIONS (2)
  - Malaise [Unknown]
  - Dizziness [Unknown]
